FAERS Safety Report 12546714 (Version 1)
Quarter: 2016Q3

REPORT INFORMATION
  Report Type: Spontaneous
  Country: US (occurrence: US)
  Receive Date: 20160711
  Receipt Date: 20160711
  Transmission Date: 20161109
  Serious: Yes (Hospitalization)
  Sender: FDA-Public Use
  Company Number: US-BAYER-2016-130252

PATIENT
  Age: 52 Year
  Sex: Male
  Weight: 94.65 kg

DRUGS (13)
  1. BAYER GENUINE ASPIRIN [Suspect]
     Active Substance: ASPIRIN
     Indication: CORONARY ARTERY DISEASE
     Dosage: DAILY DOSE 325 MG
     Route: 048
     Dates: start: 200104
  2. ATORVASTATIN [Concomitant]
     Active Substance: ATORVASTATIN
     Indication: HYPERLIPIDAEMIA
     Dosage: DAILY DOSE 80 MG
     Route: 048
     Dates: start: 20160501
  3. RANITIDINE. [Concomitant]
     Active Substance: RANITIDINE
     Indication: GASTROOESOPHAGEAL REFLUX DISEASE
     Dosage: 150 MG, PRN
     Route: 048
     Dates: start: 2015
  4. BAYER GENUINE ASPIRIN [Suspect]
     Active Substance: ASPIRIN
     Indication: CHEST PAIN
     Dosage: TOOK SEVERAL, ONCE
     Route: 048
     Dates: start: 20160529, end: 20160529
  5. CALCIUM CARBONATE. [Concomitant]
     Active Substance: CALCIUM CARBONATE
     Indication: GASTROOESOPHAGEAL REFLUX DISEASE
     Dosage: 1 DF, PRN
     Route: 048
     Dates: start: 1998
  6. BOCOCIZUMAB [Concomitant]
     Active Substance: BOCOCIZUMAB
     Indication: CARDIOVASCULAR DISORDER
     Dosage: UNK UNK, Q2WK
     Route: 058
     Dates: start: 20160329
  7. BUPROPION. [Concomitant]
     Active Substance: BUPROPION
     Indication: ANXIETY
     Dosage: 150 MG, BID
     Route: 048
     Dates: start: 2006
  8. NITROSTAT [Concomitant]
     Active Substance: NITROGLYCERIN
     Indication: CORONARY ARTERY DISEASE
     Dosage: 0.4 MG, PRN
     Route: 060
     Dates: start: 2001
  9. DULERA [Concomitant]
     Active Substance: FORMOTEROL FUMARATE DIHYDRATE\MOMETASONE FUROATE
     Indication: CHRONIC OBSTRUCTIVE PULMONARY DISEASE
     Dosage: 100/5 MCG PRN BID
     Route: 055
     Dates: start: 201511
  10. CITALOPRAM [Concomitant]
     Active Substance: CITALOPRAM HYDROBROMIDE
     Indication: ANXIETY
     Dosage: DAILY DOSE 40 MG
     Route: 048
     Dates: start: 2013
  11. PERCOCET [Concomitant]
     Active Substance: ACETAMINOPHEN\OXYCODONE HYDROCHLORIDE
     Indication: BACK PAIN
     Dosage: 10/325 MG, PRN
     Route: 048
     Dates: start: 201511
  12. ISOSORBIDE MONONITRATE. [Concomitant]
     Active Substance: ISOSORBIDE MONONITRATE
     Indication: CORONARY ARTERY DISEASE
     Dosage: DAILY DOSE 120 MG
     Route: 048
     Dates: start: 2005
  13. METOPROLOL. [Concomitant]
     Active Substance: METOPROLOL
     Indication: CORONARY ARTERY DISEASE
     Dosage: DAILY DOSE 50 MG
     Route: 048
     Dates: start: 20160501

REACTIONS (4)
  - Drug ineffective for unapproved indication [None]
  - Product use issue [None]
  - Product use issue [None]
  - Chest pain [Recovered/Resolved]

NARRATIVE: CASE EVENT DATE: 200104
